FAERS Safety Report 14205610 (Version 1)
Quarter: 2017Q4

REPORT INFORMATION
  Report Type: Spontaneous
  Country: US (occurrence: US)
  Receive Date: 20171120
  Receipt Date: 20171120
  Transmission Date: 20180321
  Serious: Yes (Other)
  Sender: FDA-Public Use
  Company Number: US-ASTRAZENECA-2017SF16284

PATIENT
  Age: 47 Year
  Sex: Female
  Weight: 69.9 kg

DRUGS (16)
  1. SEROQUEL XR [Suspect]
     Active Substance: QUETIAPINE FUMARATE
     Indication: PETIT MAL EPILEPSY
     Dosage: GENERIC
     Route: 048
  2. SEROQUEL XR [Suspect]
     Active Substance: QUETIAPINE FUMARATE
     Indication: PETIT MAL EPILEPSY
     Route: 048
  3. SEROQUEL XR [Suspect]
     Active Substance: QUETIAPINE FUMARATE
     Indication: PETIT MAL EPILEPSY
     Route: 048
  4. SEROQUEL XR [Suspect]
     Active Substance: QUETIAPINE FUMARATE
     Indication: BRAIN INJURY
     Dosage: SPLIT THE 400 MG TABLET OVER A 20 DAY TIME PERIOD, AND TOOK 200 MG INSTEAD OF 400 MG AT BED TIME ...
     Route: 048
     Dates: start: 201708
  5. OXYCODONE [Concomitant]
     Active Substance: OXYCODONE
     Indication: BACK PAIN
     Route: 048
  6. SEROQUEL XR [Suspect]
     Active Substance: QUETIAPINE FUMARATE
     Indication: BRAIN INJURY
     Route: 048
  7. SEROQUEL XR [Suspect]
     Active Substance: QUETIAPINE FUMARATE
     Indication: BRAIN INJURY
     Dosage: GENERIC
     Route: 048
  8. HYDROCODONE [Concomitant]
     Active Substance: HYDROCODONE
     Indication: NECK PAIN
     Dosage: 5/325TWO TIMES A DAY
     Route: 048
  9. HYDROCODONE [Concomitant]
     Active Substance: HYDROCODONE
     Indication: BRAIN INJURY
     Dosage: 5/325TWO TIMES A DAY
     Route: 048
  10. SEROQUEL [Suspect]
     Active Substance: QUETIAPINE FUMARATE
     Indication: PETIT MAL EPILEPSY
     Dosage: GENERIC
     Route: 048
     Dates: start: 201705
  11. SEROQUEL XR [Suspect]
     Active Substance: QUETIAPINE FUMARATE
     Indication: PETIT MAL EPILEPSY
     Dosage: SPLIT THE 400 MG TABLET OVER A 20 DAY TIME PERIOD, AND TOOK 200 MG INSTEAD OF 400 MG AT BED TIME ...
     Route: 048
     Dates: start: 201708
  12. SEROQUEL XR [Suspect]
     Active Substance: QUETIAPINE FUMARATE
     Indication: BRAIN INJURY
     Route: 048
  13. LETROZOLE. [Concomitant]
     Active Substance: LETROZOLE
     Indication: NEOPLASM MALIGNANT
     Route: 048
     Dates: start: 2016
  14. SEROQUEL [Suspect]
     Active Substance: QUETIAPINE FUMARATE
     Indication: BRAIN INJURY
     Dosage: GENERIC
     Route: 048
     Dates: start: 201705
  15. HYDROCODONE [Concomitant]
     Active Substance: HYDROCODONE
     Indication: BACK PAIN
     Dosage: 5/325TWO TIMES A DAY
     Route: 048
  16. DIAZEPAM. [Concomitant]
     Active Substance: DIAZEPAM
     Indication: ANXIETY
     Route: 048

REACTIONS (31)
  - Gallbladder disorder [Unknown]
  - Cholelithiasis [Unknown]
  - Neck pain [Unknown]
  - Condition aggravated [Unknown]
  - Partner stress [Unknown]
  - Intentional product misuse [Unknown]
  - Crying [Unknown]
  - Pruritus [Unknown]
  - Urticaria [Unknown]
  - Drug ineffective [Unknown]
  - Arthropathy [Unknown]
  - Eating disorder [Unknown]
  - Confusional state [Unknown]
  - Thinking abnormal [Unknown]
  - Drug hypersensitivity [Unknown]
  - Anxiety [Unknown]
  - Feeling abnormal [Unknown]
  - Malabsorption from administration site [Unknown]
  - Emotional disorder [Unknown]
  - Skin disorder [Unknown]
  - Drug dose omission [Not Recovered/Not Resolved]
  - Breast cancer female [Recovering/Resolving]
  - Arthritis [Unknown]
  - Frustration tolerance decreased [Unknown]
  - Speech disorder [Unknown]
  - Skin haemorrhage [Unknown]
  - Off label use [Unknown]
  - Product use in unapproved indication [Unknown]
  - Hernia [Unknown]
  - Arthralgia [Unknown]
  - Lymphoedema [Unknown]

NARRATIVE: CASE EVENT DATE: 2008
